FAERS Safety Report 12979428 (Version 3)
Quarter: 2017Q1

REPORT INFORMATION
  Report Type: Spontaneous
  Country: FI (occurrence: FI)
  Receive Date: 20161128
  Receipt Date: 20170324
  Transmission Date: 20170428
  Serious: Yes (Hospitalization)
  Sender: FDA-Public Use
  Company Number: FI-BIOVITRUM-2016FI0978

PATIENT
  Age: 33 Year
  Sex: Male

DRUGS (7)
  1. MERONEM [Concomitant]
     Active Substance: MEROPENEM
     Route: 042
     Dates: start: 20161002, end: 20161017
  2. VANCOMYCIN [Concomitant]
     Active Substance: VANCOMYCIN
     Dates: start: 20161011, end: 20161014
  3. FLUCONAZOL [Concomitant]
     Active Substance: FLUCONAZOLE
     Route: 042
     Dates: start: 20161005, end: 20161014
  4. ERDOPECT [Concomitant]
     Route: 048
     Dates: start: 20161009, end: 20161024
  5. CETRIZIN [Concomitant]
     Route: 048
     Dates: start: 20161009, end: 20161024
  6. KINERET [Suspect]
     Active Substance: ANAKINRA
     Indication: STILL^S DISEASE ADULT ONSET
     Route: 058
     Dates: start: 20161014, end: 20161027
  7. CORTISONE [Concomitant]
     Active Substance: CORTISONE\HYDROCORTISONE
     Indication: STILL^S DISEASE ADULT ONSET
     Dates: start: 201610

REACTIONS (2)
  - Agranulocytosis [Recovered/Resolved]
  - Pyrexia [Unknown]

NARRATIVE: CASE EVENT DATE: 20161027
